FAERS Safety Report 6904724 (Version 1)
Quarter: 2020Q3

REPORT INFORMATION
  Report Type: Report from Study
  Country: US (occurrence: US)
  Receive Date: 20090209
  Receipt Date: 20090209
  Transmission Date: 20201105
  Serious: Yes (Other)
  Sender: FDA-Public Use
  Company Number: US-ROCHE-611176

PATIENT
  Age: 64 Year
  Sex: Female

DRUGS (1)
  1. IBANDRONIC ACID. [Suspect]
     Active Substance: IBANDRONIC ACID
     Indication: OSTEOPOROSIS
     Dosage: FORM: PILL
     Route: 065
     Dates: start: 2008

REACTIONS (2)
  - Fall [None]
  - Ankle fracture [Unknown]

NARRATIVE: CASE EVENT DATE: 20090113
